FAERS Safety Report 6569211-3 (Version None)
Quarter: 2010Q1

REPORT INFORMATION
  Report Type: 
  Country: None (occurrence: None)
  Receive Date: 20100201
  Receipt Date: 20100201
  Transmission Date: 20100710
  Serious: Yes (Other)
  Sender: FDA-Public Use
  Company Number: None

PATIENT
  Age: 10 Year
  Sex: Male
  Weight: 41.7309 kg

DRUGS (1)
  1. MOTRIN JUNIOR STRENGTH 100MG MCNEIL -PPC, INC. [Suspect]
     Indication: MUSCULOSKELETAL PAIN
     Dates: start: 20100121, end: 20100131

REACTIONS (2)
  - PRODUCT QUALITY ISSUE [None]
  - VOMITING [None]
